FAERS Safety Report 13246410 (Version 3)
Quarter: 2018Q3

REPORT INFORMATION
  Report Type: Spontaneous
  Country: US (occurrence: US)
  Receive Date: 20170217
  Receipt Date: 20180921
  Transmission Date: 20181010
  Serious: Yes (Hospitalization)
  Sender: FDA-Public Use
  Company Number: US-IGSA-GBI004965

PATIENT
  Age: 58 Year
  Sex: Male

DRUGS (10)
  1. AMOXICILLIN. [Concomitant]
     Active Substance: AMOXICILLIN
     Dosage: 500 UNKNOWN, TID
  2. ROSUVASTATIN. [Concomitant]
     Active Substance: ROSUVASTATIN
     Dosage: 40 MG, QD
  3. TEMAZEPAM. [Concomitant]
     Active Substance: TEMAZEPAM
     Dosage: 15 MG, PRN
  4. ZOSYN [Concomitant]
     Active Substance: PIPERACILLIN SODIUM\TAZOBACTAM SODIUM
     Dosage: 4.5 G, TOTAL
     Route: 042
     Dates: start: 20161214
  5. ALBUTEIN [Suspect]
     Active Substance: ALBUMIN HUMAN
     Indication: LAPAROSCOPIC SURGERY
     Dosage: UNK
     Route: 042
     Dates: start: 20161214, end: 20161214
  6. MEFOXIN [Concomitant]
     Active Substance: CEFOXITIN SODIUM
     Indication: SEPSIS
     Dosage: 2 G, Q.2H.
     Route: 042
     Dates: start: 20161214
  7. MULTIVITAMINS W/FLUORIDE [Concomitant]
     Dosage: UNK
  8. OXYCODONE [Concomitant]
     Active Substance: OXYCODONE
     Dosage: 5 MG, PRN
  9. DRONABINOL. [Concomitant]
     Active Substance: DRONABINOL
     Dosage: 10 MG, BID
  10. IBUPROFEN. [Concomitant]
     Active Substance: IBUPROFEN
     Dosage: UNK UNK, PRN

REACTIONS (1)
  - Anaphylactic reaction [Recovered/Resolved]

NARRATIVE: CASE EVENT DATE: 20161214
